FAERS Safety Report 11507671 (Version 1)
Quarter: 2015Q3

REPORT INFORMATION
  Report Type: Spontaneous
  Country: None (occurrence: None)
  Receive Date: 20150914
  Receipt Date: 20150914
  Transmission Date: 20151125
  Serious: Yes (Hospitalization, Other)
  Sender: FDA-Public Use
  Company Number: None

PATIENT
  Age: 65 Year
  Sex: Female

DRUGS (1)
  1. BISOLVON [Suspect]
     Active Substance: BROMHEXINE HYDROCHLORIDE
     Dosage: TAKEN BY MOUTH
     Route: 048

REACTIONS (2)
  - Gastric disorder [None]
  - Dyspepsia [None]

NARRATIVE: CASE EVENT DATE: 20150905
